FAERS Safety Report 6086486-8 (Version None)
Quarter: 2009Q1

REPORT INFORMATION
  Report Type: 
  Country: None (occurrence: None)
  Receive Date: 20090223
  Receipt Date: 20090218
  Transmission Date: 20090719
  Serious: Yes (Death)
  Sender: FDA-Public Use
  Company Number: PHHY2009MX05942

PATIENT
  Age: 86 Year
  Sex: Female

DRUGS (1)
  1. RASILEZ [Suspect]
     Indication: HYPERTENSION
     Dosage: 150 MG, QD
     Route: 048
     Dates: start: 20081001

REACTIONS (6)
  - ANOREXIA [None]
  - FATIGUE [None]
  - HEPATIC FAILURE [None]
  - HYPERTENSION [None]
  - RENAL FAILURE [None]
  - SOMNOLENCE [None]
